FAERS Safety Report 17455736 (Version 1)
Quarter: 2020Q1

REPORT INFORMATION
  Report Type: Spontaneous
  Country: US (occurrence: US)
  Receive Date: 20200225
  Receipt Date: 20200225
  Transmission Date: 20200409
  Serious: No
  Sender: FDA-Public Use
  Company Number: None

PATIENT
  Age: 76 Year
  Sex: Male
  Weight: 107.8 kg

DRUGS (1)
  1. CEFAZOLIN IN NORMAL SALINE (ANCEF) SOLUTION [Suspect]
     Active Substance: CEFAZOLIN SODIUM
     Route: 040

REACTIONS (4)
  - Rash erythematous [None]
  - Pruritus [None]
  - Flushing [None]
  - Swelling face [None]

NARRATIVE: CASE EVENT DATE: 20200223
